FAERS Safety Report 8173585-X (Version None)
Quarter: 2012Q1

REPORT INFORMATION
  Report Type: 
  Country: None (occurrence: None)
  Receive Date: 20120229
  Receipt Date: 20120223
  Transmission Date: 20120608
  Serious: Yes (Other)
  Sender: FDA-Public Use
  Company Number: US-JNJFOC-20120214235

PATIENT
  Age: 63 Year
  Sex: Male
  Weight: 96.1 kg

DRUGS (8)
  1. CHANTIX [Suspect]
     Route: 065
  2. DIURETICS [Concomitant]
     Indication: HYPERTENSION
     Route: 065
  3. ANTI-INSOMNIA MEDICATION [Concomitant]
     Indication: INSOMNIA
     Route: 065
  4. CHANTIX [Suspect]
     Route: 065
     Dates: start: 20111227
  5. NICOTINE [Suspect]
     Route: 062
  6. NICOTINE [Suspect]
     Indication: DRUG WITHDRAWAL SYNDROME
     Route: 062
  7. CHANTIX [Suspect]
     Indication: SMOKING CESSATION THERAPY
     Route: 065
  8. MULTI-VITAMINS [Concomitant]
     Indication: PRODUCT USED FOR UNKNOWN INDICATION
     Route: 065

REACTIONS (5)
  - ANXIETY [None]
  - ABDOMINAL DISCOMFORT [None]
  - FLATULENCE [None]
  - DEPRESSION [None]
  - INITIAL INSOMNIA [None]
